FAERS Safety Report 23517337 (Version 2)
Quarter: 2024Q1

REPORT INFORMATION
  Report Type: Spontaneous
  Country: US (occurrence: US)
  Receive Date: 20240213
  Receipt Date: 20240323
  Transmission Date: 20240409
  Serious: No
  Sender: FDA-Public Use
  Company Number: US-GSK-US2024AMR016383

PATIENT
  Sex: Female

DRUGS (3)
  1. BENLYSTA [Suspect]
     Active Substance: BELIMUMAB
     Indication: Systemic lupus erythematosus
     Dosage: 200 MG, WE
     Route: 058
  2. BENLYSTA [Suspect]
     Active Substance: BELIMUMAB
     Indication: Systemic lupus erythematosus
     Dosage: 200 MG/ML, WE
     Route: 058
  3. BENLYSTA [Suspect]
     Active Substance: BELIMUMAB

REACTIONS (7)
  - Influenza [Unknown]
  - COVID-19 [Recovering/Resolving]
  - Injection site pruritus [Unknown]
  - Injection site pain [Unknown]
  - Toothache [Unknown]
  - Swelling face [Unknown]
  - Rhinalgia [Unknown]
